FAERS Safety Report 6985564-6 (Version None)
Quarter: 2010Q3

REPORT INFORMATION
  Report Type: 
  Country: None (occurrence: None)
  Receive Date: 20100915
  Receipt Date: 20100910
  Transmission Date: 20110219
  Serious: Yes (Hospitalization, Other)
  Sender: FDA-Public Use
  Company Number: US-MERCK-1006USA03860

PATIENT
  Age: 61 Year
  Sex: Male

DRUGS (9)
  1. ZOCOR [Suspect]
     Route: 048
     Dates: start: 20100601, end: 20100101
  2. LISINOPRIL [Concomitant]
     Route: 048
  3. HEPARIN [Concomitant]
     Route: 065
  4. ASPIRIN [Concomitant]
     Route: 065
     Dates: end: 20100607
  5. GLIPIZIDE [Concomitant]
     Route: 065
  6. PLAVIX [Suspect]
     Indication: CORONARY ARTERIAL STENT INSERTION
     Route: 048
     Dates: start: 20100607, end: 20100607
  7. PLAVIX [Suspect]
     Route: 048
     Dates: start: 20100608, end: 20100610
  8. PLAVIX [Suspect]
     Route: 048
     Dates: start: 20100610
  9. REOPRO [Suspect]
     Indication: MYOCARDIAL INFARCTION
     Route: 065
     Dates: start: 20100607

REACTIONS (2)
  - ACUTE MYOCARDIAL INFARCTION [None]
  - HEPATIC ENZYME INCREASED [None]
